FAERS Safety Report 5541595-4 (Version None)
Quarter: 2007Q4

REPORT INFORMATION
  Report Type: 
  Country: None (occurrence: None)
  Receive Date: 20071210
  Receipt Date: 20071025
  Transmission Date: 20080405
  Serious: Yes (Hospitalization)
  Sender: FDA-Public Use
  Company Number: BE-AVENTIS-200715794EU

PATIENT
  Age: 91 Year
  Sex: Female

DRUGS (7)
  1. FUROSEMIDE [Suspect]
  2. AMIODARONE HCL [Suspect]
  3. METOPROLOL [Concomitant]
  4. LISINOPRIL [Concomitant]
  5. LORMETAZEPAM [Concomitant]
  6. PANTOPRAZOL [Concomitant]
  7. LEVOTHYROXINE SODIUM [Concomitant]

REACTIONS (5)
  - DRUG INTERACTION [None]
  - ELECTROCARDIOGRAM QT PROLONGED [None]
  - HYPOKALAEMIA [None]
  - SUPRAVENTRICULAR EXTRASYSTOLES [None]
  - TORSADE DE POINTES [None]
